FAERS Safety Report 7484790-X (Version None)
Quarter: 2011Q2

REPORT INFORMATION
  Report Type: 
  Country: None (occurrence: None)
  Receive Date: 20110517
  Receipt Date: 20110509
  Transmission Date: 20111010
  Serious: Yes (Other)
  Sender: FDA-Public Use
  Company Number: US-ROCHE-754172

PATIENT
  Sex: Male

DRUGS (2)
  1. PEGASYS [Suspect]
     Indication: HEPATITIS C
     Dosage: FORM: PRE-FILLED SYRINGE
     Route: 065
     Dates: start: 20110114
  2. COPEGUS [Suspect]
     Indication: HEPATITIS C
     Dosage: IN DIVIDED DOSES
     Route: 065
     Dates: start: 20110114

REACTIONS (7)
  - RASH MACULAR [None]
  - STRABISMUS [None]
  - HEADACHE [None]
  - MENTAL IMPAIRMENT [None]
  - VOMITING [None]
  - SKIN DISCOLOURATION [None]
  - HYPERHIDROSIS [None]
